FAERS Safety Report 21746975 (Version 1)
Quarter: 2022Q4

REPORT INFORMATION
  Report Type: Spontaneous
  Country: US (occurrence: US)
  Receive Date: 20221219
  Receipt Date: 20221219
  Transmission Date: 20230113
  Serious: Yes (Other)
  Sender: FDA-Public Use
  Company Number: US-SA-SAC20221216001030

PATIENT
  Age: 66 Year
  Sex: Female

DRUGS (12)
  1. DUPIXENT [Suspect]
     Active Substance: DUPILUMAB
     Indication: Dermatitis contact
     Dosage: 300 MG, QOW
     Route: 058
  2. AMLODIPINE BESYLATE [Concomitant]
     Active Substance: AMLODIPINE BESYLATE
  3. ATIVAN [Concomitant]
     Active Substance: LORAZEPAM
  4. COREG CR [Concomitant]
     Active Substance: CARVEDILOL PHOSPHATE
  5. FIORICET [Concomitant]
     Active Substance: ACETAMINOPHEN\BUTALBITAL\CAFFEINE
  6. FUROSEMIDE [Concomitant]
     Active Substance: FUROSEMIDE
  7. HYDROXYZINE [Concomitant]
     Active Substance: HYDROXYZINE HYDROCHLORIDE
  8. IRBESARTAN [Concomitant]
     Active Substance: IRBESARTAN
  9. MOBIC [Concomitant]
     Active Substance: MELOXICAM
  10. OMEPRAZOLE [Concomitant]
     Active Substance: OMEPRAZOLE
  11. PRAVASTATIN [Concomitant]
     Active Substance: PRAVASTATIN
  12. ZYRTEC-D [Concomitant]
     Active Substance: CETIRIZINE HYDROCHLORIDE\PSEUDOEPHEDRINE HYDROCHLORIDE

REACTIONS (7)
  - Chronic lymphocytic leukaemia [Unknown]
  - Skin erosion [Unknown]
  - Cerebrovascular accident [Unknown]
  - Depressed mood [Unknown]
  - Gait disturbance [Unknown]
  - Arthropathy [Unknown]
  - Drug ineffective for unapproved indication [Unknown]

NARRATIVE: CASE EVENT DATE: 20221001
